FAERS Safety Report 12586120 (Version 1)
Quarter: 2016Q3

REPORT INFORMATION
  Report Type: Spontaneous
  Country: US (occurrence: None)
  Receive Date: 20160722
  Receipt Date: 20160722
  Transmission Date: 20161109
  Serious: No
  Sender: FDA-Public Use
  Company Number: None

PATIENT
  Age: 54 Year
  Sex: Male
  Weight: 88 kg

DRUGS (1)
  1. LIALDA [Suspect]
     Active Substance: MESALAMINE

REACTIONS (2)
  - Alopecia [None]
  - Rash [None]

NARRATIVE: CASE EVENT DATE: 20110701
